FAERS Safety Report 4639852-9 (Version None)
Quarter: 2005Q2

REPORT INFORMATION
  Report Type: 
  Country: None (occurrence: None)
  Receive Date: 20050415
  Receipt Date: 20050415
  Transmission Date: 20051028
  Serious: Yes (Hospitalization)
  Sender: FDA-Public Use
  Company Number: None

PATIENT
  Age: 62 Year
  Sex: Female

DRUGS (4)
  1. COPPERTONE LOTION SPF 15 LOTION [Suspect]
     Indication: PROPHYLAXIS AGAINST SOLAR RADIATION
     Dosage: TOP-DERM
     Route: 061
     Dates: start: 20050306
  2. ENALAPRIL [Concomitant]
  3. CARBAMAZEPINE [Concomitant]
  4. ANTIBIOTIC [Concomitant]

REACTIONS (8)
  - CONFUSIONAL STATE [None]
  - DRUG HYPERSENSITIVITY [None]
  - MEMORY IMPAIRMENT [None]
  - NASAL DRYNESS [None]
  - STEVENS-JOHNSON SYNDROME [None]
  - THERAPY NON-RESPONDER [None]
  - TONGUE DRY [None]
  - VULVOVAGINAL DRYNESS [None]
